FAERS Safety Report 5370324-2 (Version None)
Quarter: 2007Q2

REPORT INFORMATION
  Report Type: 
  Country: None (occurrence: None)
  Receive Date: 20070626
  Receipt Date: 20061108
  Transmission Date: 20071010
  Serious: No
  Sender: FDA-Public Use
  Company Number: US-AMGEN-US199585

PATIENT
  Sex: Male

DRUGS (4)
  1. ARANESP [Suspect]
     Indication: RENAL FAILURE CHRONIC
     Route: 058
     Dates: start: 20060901
  2. COREG [Concomitant]
  3. SODIUM BICARBONATE [Concomitant]
  4. ZYLOPRIM [Concomitant]

REACTIONS (4)
  - BLOOD PRESSURE INCREASED [None]
  - FATIGUE [None]
  - HEART RATE IRREGULAR [None]
  - JOINT SWELLING [None]
